FAERS Safety Report 9785586 (Version 1)
Quarter: 2013Q4

REPORT INFORMATION
  Report Type: Spontaneous
  Country: IT (occurrence: None)
  Receive Date: 20131224
  Receipt Date: 20131224
  Transmission Date: 20140711
  Serious: Yes (Other)
  Sender: FDA-Public Use
  Company Number: 2078287

PATIENT
  Age: 42 Year
  Sex: Female
  Weight: 80 kg

DRUGS (1)
  1. DOCETAXEL [Suspect]
     Indication: BREAST CANCER
     Dosage: 80 MG MILLIGRAM (S), CYCLICAL, INTRAVENOUS DRIP
     Route: 041
     Dates: start: 20131125, end: 20131125

REACTIONS (4)
  - Feeling hot [None]
  - Flushing [None]
  - Tachycardia [None]
  - Hypersensitivity [None]
